FAERS Safety Report 15330060 (Version 1)
Quarter: 2018Q3

REPORT INFORMATION
  Report Type: Spontaneous
  Country: US (occurrence: US)
  Receive Date: 20180824
  Receipt Date: 20180824
  Transmission Date: 20181010
  Serious: Yes (Hospitalization)
  Sender: FDA-Public Use
  Company Number: None

PATIENT
  Age: 60 Year
  Sex: Male

DRUGS (19)
  1. ENALAPRIL [Concomitant]
     Active Substance: ENALAPRIL
  2. CLINDAMYCIN. [Concomitant]
     Active Substance: CLINDAMYCIN
  3. EMBRACE LANC [Concomitant]
  4. GABAPENTIN. [Concomitant]
     Active Substance: GABAPENTIN
  5. METFORMIN [Concomitant]
     Active Substance: METFORMIN HYDROCHLORIDE
  6. OXYCODONE [Concomitant]
     Active Substance: OXYCODONE
  7. CLOPIDOGREL [Concomitant]
     Active Substance: CLOPIDOGREL BISULFATE
  8. AMLODIPINE [Concomitant]
     Active Substance: AMLODIPINE BESYLATE
  9. COLCHICINE. [Concomitant]
     Active Substance: COLCHICINE
  10. CONTOUR TES NEXT [Concomitant]
  11. DOXYCYCL HYC [Concomitant]
  12. ATORVASTATIN [Concomitant]
     Active Substance: ATORVASTATIN
  13. TRIAMCINOLONE CRE [Concomitant]
  14. DOXYCYC MONO [Concomitant]
     Active Substance: DOXYCYCLINE
  15. LANTUS [Concomitant]
     Active Substance: INSULIN GLARGINE
  16. GLIPIZIDE. [Concomitant]
     Active Substance: GLIPIZIDE
  17. COSENTYX [Suspect]
     Active Substance: SECUKINUMAB
     Indication: PSORIASIS
     Dosage: ?          OTHER FREQUENCY:Q30D;?
     Route: 058
     Dates: start: 20160210
  18. CLOBETASOL [Concomitant]
     Active Substance: CLOBETASOL
  19. ECONAZOLE [Concomitant]
     Active Substance: ECONAZOLE

REACTIONS (1)
  - Aortic bypass [None]

NARRATIVE: CASE EVENT DATE: 20180806
